FAERS Safety Report 8400340-5 (Version None)
Quarter: 2012Q2

REPORT INFORMATION
  Report Type: 
  Country: None (occurrence: None)
  Receive Date: 20120531
  Receipt Date: 20120525
  Transmission Date: 20120825
  Serious: Yes (Death, Hospitalization)
  Sender: FDA-Public Use
  Company Number: JP-ACTELION-A-CH2012-65841

PATIENT
  Sex: Male

DRUGS (6)
  1. TORSEMIDE [Concomitant]
  2. BERAPROST SODIUM [Concomitant]
  3. ASPIRIN [Concomitant]
  4. TRACLEER [Suspect]
     Indication: PULMONARY HYPERTENSION
     Dosage: 125 MG, BID
     Route: 048
     Dates: start: 20110721, end: 20120509
  5. TRACLEER [Suspect]
     Dosage: 62.5 MG, BID
     Route: 048
     Dates: start: 20101118, end: 20110720
  6. OXYGEN [Concomitant]

REACTIONS (3)
  - RIGHT VENTRICULAR FAILURE [None]
  - RESPIRATORY FAILURE [None]
  - ATRIAL FIBRILLATION [None]
